FAERS Safety Report 12324560 (Version 1)
Quarter: 2016Q2

REPORT INFORMATION
  Report Type: Report from Study
  Country: US (occurrence: US)
  Receive Date: 20160502
  Receipt Date: 20160502
  Transmission Date: 20160815
  Serious: No
  Sender: FDA-Public Use
  Company Number: US-ABBVIE-16P-163-1567088-00

PATIENT
  Age: 62 Year
  Sex: Male

DRUGS (2)
  1. ANDROGEL [Suspect]
     Active Substance: TESTOSTERONE
     Indication: BLOOD TESTOSTERONE DECREASED
     Dosage: 4 PUMPS DAILY
     Route: 061
     Dates: start: 2011
  2. ANDROGEL [Suspect]
     Active Substance: TESTOSTERONE
     Indication: PRODUCT USED FOR UNKNOWN INDICATION
     Dosage: UNKNOWN DOSE
     Route: 065
     Dates: start: 2009, end: 2011

REACTIONS (2)
  - Urine alcohol test positive [Not Recovered/Not Resolved]
  - Glucose urine present [Not Recovered/Not Resolved]

NARRATIVE: CASE EVENT DATE: 201602
